FAERS Safety Report 25950953 (Version 1)
Quarter: 2025Q4

REPORT INFORMATION
  Report Type: Spontaneous
  Country: EU (occurrence: EU)
  Receive Date: 20251023
  Receipt Date: 20251023
  Transmission Date: 20260117
  Serious: Yes (Hospitalization)
  Sender: JOHNSON AND JOHNSON
  Company Number: EU-JNJFOC-20251023841

PATIENT
  Age: 57 Year
  Sex: Male

DRUGS (2)
  1. COBICISTAT\DARUNAVIR\EMTRICITABINE\TENOFOVIR ALAFENAMIDE [Suspect]
     Active Substance: COBICISTAT\DARUNAVIR\EMTRICITABINE\TENOFOVIR ALAFENAMIDE
     Indication: HIV infection
     Route: 048
  2. DOXORUBICIN [Concomitant]
     Active Substance: DOXORUBICIN
     Indication: Product used for unknown indication
     Dates: start: 20250410

REACTIONS (9)
  - Normocytic anaemia [Recovering/Resolving]
  - Thrombocytopenia [Recovering/Resolving]
  - Dyspnoea [Unknown]
  - Pleural effusion [Unknown]
  - Splenomegaly [Unknown]
  - Epistaxis [Unknown]
  - Epstein-Barr virus infection [Unknown]
  - Human herpesvirus 8 infection [Unknown]
  - Peripheral swelling [Unknown]
